FAERS Safety Report 7426816-5 (Version None)
Quarter: 2011Q2

REPORT INFORMATION
  Report Type: 
  Country: None (occurrence: None)
  Receive Date: 20110420
  Receipt Date: 20110412
  Transmission Date: 20111010
  Serious: Yes (Other)
  Sender: FDA-Public Use
  Company Number: PHHY2011IE31101

PATIENT
  Age: 13 Year
  Sex: Female

DRUGS (1)
  1. SOMATROPIN RDNA [Suspect]
     Indication: GROWTH HORMONE DEFICIENCY
     Dosage: 1.2 MG, DAILY

REACTIONS (5)
  - PAPILLOEDEMA [None]
  - HYDROCEPHALUS [None]
  - HEADACHE [None]
  - ARNOLD-CHIARI MALFORMATION [None]
  - HYPERREFLEXIA [None]
